FAERS Safety Report 23718875 (Version 2)
Quarter: 2024Q2

REPORT INFORMATION
  Report Type: Report from Study
  Country: IT (occurrence: IT)
  Receive Date: 20240408
  Receipt Date: 20240531
  Transmission Date: 20240716
  Serious: Yes (Hospitalization, Other)
  Sender: FDA-Public Use
  Company Number: None

PATIENT
  Age: 6 Year
  Sex: Male
  Weight: 23 kg

DRUGS (3)
  1. CYCLOPHOSPHAMIDE [Suspect]
     Active Substance: CYCLOPHOSPHAMIDE
     Indication: B-cell type acute leukaemia
     Dosage: 840 MG/DAY ON 16/02 AND 04/03/2024
     Route: 042
     Dates: start: 20240216, end: 20240304
  2. PURINETHOL [Suspect]
     Active Substance: MERCAPTOPURINE
     Indication: B-cell type acute leukaemia
     Dosage: 50 MG/DAY
     Route: 048
     Dates: start: 20240214, end: 20240304
  3. CYTARABINE [Suspect]
     Active Substance: CYTARABINE
     Indication: B-cell type acute leukaemia
     Dosage: 63 MG/DAY FROM 19 TO 22/02/2024 63 MG/DAY FROM 26 TO 29/02/2024
     Route: 042
     Dates: start: 20240219, end: 20240229

REACTIONS (4)
  - Hypogammaglobulinaemia [Unknown]
  - Febrile neutropenia [Recovered/Resolved]
  - Pancytopenia [Not Recovered/Not Resolved]
  - Anaemia [Recovered/Resolved]

NARRATIVE: CASE EVENT DATE: 20240227
